FAERS Safety Report 13849031 (Version 1)
Quarter: 2017Q3

REPORT INFORMATION
  Report Type: Spontaneous
  Country: US (occurrence: US)
  Receive Date: 20170809
  Receipt Date: 20170809
  Transmission Date: 20171127
  Serious: Yes (Other)
  Sender: FDA-Public Use
  Company Number: US-AMGEN-USASP2017117699

PATIENT
  Age: 60 Year
  Sex: Female

DRUGS (4)
  1. ENBREL [Suspect]
     Active Substance: ETANERCEPT
     Dosage: UNK
     Route: 065
  2. XELJANZ [Concomitant]
     Active Substance: TOFACITINIB CITRATE
     Dosage: 5 MG, UNK
     Route: 065
  3. MTX [Suspect]
     Active Substance: METHOTREXATE SODIUM
     Indication: RHEUMATOID ARTHRITIS
     Dosage: UNK, 6 TABS QWK
     Route: 065
  4. ENBREL [Suspect]
     Active Substance: ETANERCEPT
     Indication: RHEUMATOID ARTHRITIS
     Dosage: UNK
     Route: 065

REACTIONS (20)
  - Rotator cuff repair [Unknown]
  - Pain [Unknown]
  - Chronic obstructive pulmonary disease [Unknown]
  - Fatigue [Unknown]
  - Back pain [Unknown]
  - Musculoskeletal stiffness [Unknown]
  - Sinus disorder [Unknown]
  - Joint swelling [Unknown]
  - Bronchitis [Unknown]
  - Productive cough [Unknown]
  - Asthma [Unknown]
  - Pain in jaw [Unknown]
  - Synovitis [Unknown]
  - Arthralgia [Unknown]
  - Pyrexia [Unknown]
  - Nasopharyngitis [Unknown]
  - Myalgia [Unknown]
  - Alopecia [Unknown]
  - Joint stiffness [Unknown]
  - Hypersensitivity [Unknown]

NARRATIVE: CASE EVENT DATE: 201503
